FAERS Safety Report 20531946 (Version 1)
Quarter: 2022Q1

REPORT INFORMATION
  Report Type: Spontaneous
  Country: AR (occurrence: AR)
  Receive Date: 20220301
  Receipt Date: 20220301
  Transmission Date: 20220423
  Serious: Yes (Other)
  Sender: FDA-Public Use
  Company Number: AR-PFIZER INC-202200255088

PATIENT
  Age: 54 Year
  Sex: Male

DRUGS (2)
  1. SUTENT [Suspect]
     Active Substance: SUNITINIB MALATE
     Indication: Metastatic renal cell carcinoma
     Dosage: DAILY, SCHEME 2/1 REST
     Dates: start: 20190613
  2. SUTENT [Suspect]
     Active Substance: SUNITINIB MALATE
     Dosage: (DAILY, SCHEME 2/1 REST) 21 DAYS
     Dates: end: 20220215

REACTIONS (1)
  - Gastrointestinal disorder [Not Recovered/Not Resolved]
